FAERS Safety Report 14942337 (Version 2)
Quarter: 2019Q4

REPORT INFORMATION
  Report Type: Spontaneous
  Country: GB (occurrence: GB)
  Receive Date: 20180528
  Receipt Date: 20191113
  Transmission Date: 20200122
  Serious: Yes (Congenital Anomaly)
  Sender: FDA-Public Use
  Company Number: GB-009507513-1805GBR010058

PATIENT
  Sex: Female
  Weight: 3.55 kg

DRUGS (3)
  1. MIRTAZAPINE. [Suspect]
     Active Substance: MIRTAZAPINE
     Indication: ANXIETY
     Route: 064
  2. QUETIAPINE FUMARATE. [Suspect]
     Active Substance: QUETIAPINE FUMARATE
     Indication: ANXIETY
     Route: 064
  3. ACETAMINOPHEN AND CODEINE [Concomitant]
     Active Substance: ACETAMINOPHEN\CODEINE PHOSPHATE
     Dosage: TAKEN BRIEFLY AT END OF PREGNANCY
     Route: 064

REACTIONS (3)
  - Foetal exposure during pregnancy [Unknown]
  - Congenital hand malformation [Unknown]
  - Ventricular septal defect [Unknown]
